FAERS Safety Report 10666370 (Version 1)
Quarter: 2014Q4

REPORT INFORMATION
  Report Type: Spontaneous
  Country: US (occurrence: US)
  Receive Date: 20141220
  Receipt Date: 20141220
  Transmission Date: 20150529
  Serious: No
  Sender: FDA-Public Use
  Company Number: US-BAUSCH-SYM-2014-20821

PATIENT
  Sex: Male

DRUGS (2)
  1. XENAZINE [Suspect]
     Active Substance: TETRABENAZINE
     Indication: HUNTINGTON^S DISEASE
     Dosage: 12.5MG TWO TABLETS IN THE MORNING, ONE TABLET AT NOON, AND ONE TABLET IN THE EVENING.
     Route: 048
     Dates: start: 2013, end: 201401
  2. XENAZINE [Suspect]
     Active Substance: TETRABENAZINE
     Dosage: 12.5MG TWO TABLETS IN THE MORNING, ONE TABLET AT NOON, AND ONE TABLET IN THE EVENING
     Route: 048
     Dates: start: 201401

REACTIONS (4)
  - Aggression [Unknown]
  - Insomnia [Unknown]
  - Agitation [Unknown]
  - Drug ineffective [Unknown]
